FAERS Safety Report 23968705 (Version 1)
Quarter: 2024Q2

REPORT INFORMATION
  Report Type: Spontaneous
  Country: US (occurrence: US)
  Receive Date: 20240612
  Receipt Date: 20240612
  Transmission Date: 20240716
  Serious: No
  Sender: FDA-Public Use
  Company Number: US-SA-SAC20240606001356

PATIENT
  Sex: Male
  Weight: 71 kg

DRUGS (1)
  1. DUPIXENT [Suspect]
     Active Substance: DUPILUMAB
     Indication: Illness
     Dosage: 300 MG, QOW
     Route: 058

REACTIONS (5)
  - Confusional state [Unknown]
  - Fall [Unknown]
  - Gait disturbance [Unknown]
  - White blood cell count decreased [Unknown]
  - Eosinophil count increased [Unknown]
